FAERS Safety Report 8097836-5 (Version None)
Quarter: 2012Q1

REPORT INFORMATION
  Report Type: 
  Country: None (occurrence: None)
  Receive Date: 20120128
  Receipt Date: 20110805
  Transmission Date: 20120608
  Serious: No
  Sender: FDA-Public Use
  Company Number: US-ABBOTT-11P-163-0844328-00

PATIENT
  Sex: Male
  Weight: 90.8 kg

DRUGS (3)
  1. HYDROGEN PEROXIDE SOLUTION [Concomitant]
     Indication: BONE DISORDER
     Dosage: SWISH AND SPIT DAILY
  2. LISTERINE [Concomitant]
     Indication: BONE DISORDER
     Dosage: SWISH AND SPIT DAILY
  3. HUMIRA [Suspect]
     Indication: ANKYLOSING SPONDYLITIS
     Route: 058
     Dates: start: 20110620, end: 20110719

REACTIONS (2)
  - CELLULITIS [None]
  - ERYTHEMA [None]
